FAERS Safety Report 8525819 (Version 3)
Quarter: 2013Q4

REPORT INFORMATION
  Report Type: Report from Study
  Country: CA (occurrence: CA)
  Receive Date: 20120423
  Receipt Date: 20131106
  Transmission Date: 20140711
  Serious: Yes (Other)
  Sender: FDA-Public Use
  Company Number: CA-ROCHE-1060379

PATIENT
  Age: 50 Year
  Sex: Female
  Weight: 74.8 kg

DRUGS (12)
  1. RITUXAN [Suspect]
     Indication: RHEUMATOID ARTHRITIS
     Route: 042
     Dates: start: 20080212
  2. METHOTREXATE [Concomitant]
     Route: 058
  3. FOLIC ACID [Concomitant]
     Route: 065
  4. VITAMIN C [Concomitant]
     Route: 065
  5. ACETAMINOPHEN [Concomitant]
     Indication: PREMEDICATION
     Route: 048
     Dates: start: 20111222, end: 20111222
  6. SOLUCORT [Concomitant]
     Indication: PREMEDICATION
     Route: 042
     Dates: start: 20111222, end: 20111222
  7. METHYLPREDNISOLONE [Concomitant]
     Route: 042
     Dates: start: 20080212, end: 20110707
  8. LYSINE [Concomitant]
  9. HYDROCORTISONE [Concomitant]
     Indication: PREMEDICATION
     Route: 042
     Dates: start: 20110615, end: 20110629
  10. HYDROCORTISONE [Concomitant]
     Route: 042
     Dates: start: 20111222, end: 20120626
  11. PREDNISONE [Concomitant]
     Indication: PREMEDICATION
     Route: 048
     Dates: start: 20111208
  12. PREDNISONE [Concomitant]
     Route: 048
     Dates: start: 20121213

REACTIONS (5)
  - Upper limb fracture [Recovered/Resolved]
  - Dyspnoea [Recovered/Resolved]
  - Flushing [Recovered/Resolved]
  - Menopausal symptoms [Unknown]
  - Hot flush [Unknown]
